FAERS Safety Report 11501645 (Version 2)
Quarter: 2015Q3

REPORT INFORMATION
  Report Type: Spontaneous
  Country: FR (occurrence: FR)
  Receive Date: 20150914
  Receipt Date: 20150925
  Transmission Date: 20151125
  Serious: Yes (Life-Threatening, Other)
  Sender: FDA-Public Use
  Company Number: FR-PFIZER INC-2015302880

PATIENT
  Age: 63 Year
  Sex: Male

DRUGS (12)
  1. PERFALGAN [Suspect]
     Active Substance: ACETAMINOPHEN
     Dosage: UNK
     Route: 042
     Dates: start: 20150518, end: 20150605
  2. INEXIUM [Suspect]
     Active Substance: ESOMEPRAZOLE
     Dosage: 40 MG, 1X/DAY
     Route: 048
     Dates: start: 20150518, end: 20150604
  3. LAROXYL [Suspect]
     Active Substance: AMITRIPTYLINE
     Dosage: 5 DROPS IN THE MORNING AND 10 DROPS IN THE EVENING
     Route: 048
     Dates: start: 20150518, end: 20150604
  4. LOVENOX [Suspect]
     Active Substance: ENOXAPARIN SODIUM
     Dosage: 0.4 ML, UNK
     Route: 042
     Dates: start: 20150518, end: 20150604
  5. GENTAMICINE PANPHARMA [Suspect]
     Active Substance: GENTAMICIN
     Dosage: UNK
     Route: 042
     Dates: start: 20150527, end: 20150531
  6. ACUPAN [Concomitant]
     Active Substance: NEFOPAM HYDROCHLORIDE
     Dosage: UNK
     Dates: start: 20150519
  7. LYRICA [Suspect]
     Active Substance: PREGABALIN
     Dosage: 50 MG IN THE MORNING AND 75 MG IN THE EVENING
     Route: 048
     Dates: start: 20150520, end: 20150531
  8. SKENAN [Concomitant]
     Active Substance: MORPHINE SULFATE
     Dosage: UNK
     Dates: start: 20150522, end: 20150530
  9. LYRICA [Suspect]
     Active Substance: PREGABALIN
     Dosage: 50 MG IN THE MORNING AND 75 MG IN THE EVENING
     Route: 048
     Dates: start: 20150602, end: 20150604
  10. ORBENINE [Suspect]
     Active Substance: CLOXACILLIN SODIUM
     Indication: INTERVERTEBRAL DISCITIS
     Dosage: 2 G, 3X/DAY
     Route: 042
     Dates: start: 20150523, end: 20150604
  11. RIFADINE [Suspect]
     Active Substance: RIFAMPIN
     Dosage: 600 MG, 2X/DAY
     Route: 042
     Dates: start: 20150523, end: 20150526
  12. MORPHINE [Concomitant]
     Active Substance: MORPHINE
     Dosage: UNK
     Dates: start: 20150530

REACTIONS (3)
  - Hypotension [Recovered/Resolved]
  - Drug reaction with eosinophilia and systemic symptoms [Recovered/Resolved]
  - Oxygen saturation decreased [Recovered/Resolved]

NARRATIVE: CASE EVENT DATE: 20150604
